FAERS Safety Report 5418837-9 (Version None)
Quarter: 2007Q3

REPORT INFORMATION
  Report Type: 
  Country: None (occurrence: None)
  Receive Date: 20070718
  Receipt Date: 20060803
  Transmission Date: 20080115
  Serious: Yes (Hospitalization, Other)
  Sender: FDA-Public Use
  Company Number: 2006090125

PATIENT
  Age: 74 Year
  Sex: Male
  Weight: 74.8435 kg

DRUGS (7)
  1. CELEBREX [Suspect]
     Indication: PAIN
     Dosage: 200 MG (100 MG, 2 IN 1 D)
     Dates: start: 20040414, end: 20050130
  2. ATENOLOL [Concomitant]
  3. LISINOPRIL [Concomitant]
  4. PEPCID [Concomitant]
  5. DOCUSATE [Concomitant]
  6. NASAREL(FLUNISOLIDE) [Concomitant]
  7. HYDROCHLOROTHIAZIDE [Concomitant]

REACTIONS (1)
  - CEREBROVASCULAR ACCIDENT [None]
